FAERS Safety Report 15960997 (Version 3)
Quarter: 2019Q2

REPORT INFORMATION
  Report Type: Spontaneous
  Country: US (occurrence: US)
  Receive Date: 20190214
  Receipt Date: 20190620
  Transmission Date: 20190711
  Serious: No
  Sender: FDA-Public Use
  Company Number: US-PFIZER INC-2019058083

PATIENT
  Age: 48 Year
  Sex: Female
  Weight: 123.36 kg

DRUGS (2)
  1. EMLA [Suspect]
     Active Substance: LIDOCAINE\PRILOCAINE
     Dosage: UNK
  2. MORPHINE SULFATE. [Suspect]
     Active Substance: MORPHINE SULFATE
     Dosage: UNK

REACTIONS (1)
  - Drug hypersensitivity [Unknown]
